FAERS Safety Report 9225906 (Version 1)
Quarter: 2013Q2

REPORT INFORMATION
  Report Type: Report from Study
  Country: CA (occurrence: CA)
  Receive Date: 20130411
  Receipt Date: 20130411
  Transmission Date: 20140414
  Serious: Yes (Other)
  Sender: FDA-Public Use
  Company Number: CA-JNJFOC-20130403314

PATIENT
  Age: 26 Year
  Sex: Male
  Weight: 88.7 kg

DRUGS (2)
  1. REMICADE [Suspect]
     Indication: COLITIS ULCERATIVE
     Dosage: 35 INFUSIONS
     Route: 042
  2. EFFEXOR [Concomitant]
     Route: 065

REACTIONS (3)
  - Mass [Recovered/Resolved]
  - Post procedural haematoma [Recovered/Resolved]
  - Bronchitis [Unknown]
